FAERS Safety Report 5894280-3 (Version None)
Quarter: 2008Q3

REPORT INFORMATION
  Report Type: 
  Country: None (occurrence: None)
  Receive Date: 20080923
  Receipt Date: 20080407
  Transmission Date: 20090109
  Serious: No
  Sender: FDA-Public Use
  Company Number: US-ASTRAZENECA-2008UW07019

PATIENT
  Age: 14 Year
  Sex: Female

DRUGS (8)
  1. SEROQUEL [Suspect]
     Indication: MAJOR DEPRESSION
     Route: 048
     Dates: start: 20080331
  2. SEROQUEL [Suspect]
     Indication: PSYCHOTIC DISORDER
     Route: 048
     Dates: start: 20080331
  3. SEROQUEL [Suspect]
     Indication: ILL-DEFINED DISORDER
     Route: 048
     Dates: start: 20080331
  4. SEROQUEL [Suspect]
     Route: 048
  5. SEROQUEL [Suspect]
     Route: 048
  6. SEROQUEL [Suspect]
     Route: 048
  7. PAROXETINE HCL [Concomitant]
  8. BACTRIM DS [Concomitant]

REACTIONS (6)
  - AGITATION [None]
  - EXTRAPYRAMIDAL DISORDER [None]
  - MANIA [None]
  - RESTLESSNESS [None]
  - SPEECH DISORDER [None]
  - TARDIVE DYSKINESIA [None]
